FAERS Safety Report 7639240-7 (Version None)
Quarter: 2011Q3

REPORT INFORMATION
  Report Type: 
  Country: None (occurrence: None)
  Receive Date: 20110721
  Receipt Date: 20110706
  Transmission Date: 20111222
  Serious: Yes (Other)
  Sender: FDA-Public Use
  Company Number: AUR-APL-2011-04158

PATIENT
  Age: 58 Year
  Sex: Female
  Weight: 59.1 kg

DRUGS (8)
  1. CARBOPLATIN [Suspect]
     Indication: NON-SMALL CELL LUNG CANCER
     Dosage: (760 MG,3 WK),INTRAVENOUS
     Route: 042
     Dates: start: 20090108, end: 20090302
  2. AXITINIB [Suspect]
     Indication: NON-SMALL CELL LUNG CANCER
     Dosage: 20 MG (10 MG,2 IN 1 D),ORAL
     Route: 048
     Dates: start: 20090108
  3. OMEPRAZOLE [Concomitant]
  4. PACLITAXEL [Suspect]
     Indication: NON-SMALL CELL LUNG CANCER
     Dosage: (238 MG,3 WK),INTRAVENOUS
     Route: 042
     Dates: start: 20090108, end: 20090312
  5. AMOXICILLIN [Suspect]
     Indication: LOWER RESPIRATORY TRACT INFECTION
     Dosage: 1500 MG (500 MG,3 IN 1 D) ; 1500 MG (500 MG,3 IN 1 D)
     Dates: start: 20090226, end: 20090305
  6. AMOXICILLIN [Suspect]
     Indication: LOWER RESPIRATORY TRACT INFECTION
     Dosage: 1500 MG (500 MG,3 IN 1 D) ; 1500 MG (500 MG,3 IN 1 D)
     Dates: start: 20090316, end: 20090327
  7. CLARITHROMYCIN [Suspect]
     Indication: LOWER RESPIRATORY TRACT INFECTION
     Dosage: 1000 MG (500 MG,2 IN 1 D)
     Dates: start: 20090316, end: 20090320
  8. MOVICOL (NULYTELY /01053601/) [Concomitant]

REACTIONS (5)
  - ASPARTATE AMINOTRANSFERASE INCREASED [None]
  - ALANINE AMINOTRANSFERASE INCREASED [None]
  - BLOOD ALKALINE PHOSPHATASE INCREASED [None]
  - LOWER RESPIRATORY TRACT INFECTION [None]
  - FATIGUE [None]
